FAERS Safety Report 5175454-6 (Version None)
Quarter: 2006Q4

REPORT INFORMATION
  Report Type: 
  Country: None (occurrence: None)
  Receive Date: 20061215
  Receipt Date: 20061205
  Transmission Date: 20070319
  Serious: Yes (Other)
  Sender: FDA-Public Use
  Company Number: PHNR2006AU01685

PATIENT
  Sex: Female

DRUGS (2)
  1. FEMARA [Suspect]
     Indication: BREAST CANCER
     Dosage: 2.5 MG, QD
     Dates: start: 20060501
  2. OMEGA 3 [Concomitant]

REACTIONS (4)
  - BLOOD IRON INCREASED [None]
  - CATARACT [None]
  - DRY EYE [None]
  - VISION BLURRED [None]
